FAERS Safety Report 15422312 (Version 1)
Quarter: 2018Q3

REPORT INFORMATION
  Report Type: Report from Study
  Country: US (occurrence: US)
  Receive Date: 20180924
  Receipt Date: 20180924
  Transmission Date: 20181010
  Serious: Yes (Other)
  Sender: FDA-Public Use
  Company Number: US-BIOGEN-2018BI00634890

PATIENT
  Sex: Female

DRUGS (1)
  1. TYSABRI [Suspect]
     Active Substance: NATALIZUMAB
     Indication: MULTIPLE SCLEROSIS
     Route: 065
     Dates: start: 20170104, end: 20180808

REACTIONS (5)
  - Confusional state [Unknown]
  - Visual impairment [Unknown]
  - Hypoaesthesia [Unknown]
  - Memory impairment [Unknown]
  - Vertigo [Unknown]
